FAERS Safety Report 23576813 (Version 1)
Quarter: 2024Q1

REPORT INFORMATION
  Report Type: Spontaneous
  Country: NO (occurrence: NO)
  Receive Date: 20240228
  Receipt Date: 20240228
  Transmission Date: 20240409
  Serious: Yes (Hospitalization)
  Sender: FDA-Public Use
  Company Number: None

PATIENT
  Sex: Male

DRUGS (2)
  1. MABTHERA [Suspect]
     Active Substance: RITUXIMAB
     Indication: Multiple sclerosis
     Dosage: LAST DOSE ADMINISTERED 05/FEB/2024
     Route: 065
     Dates: start: 2013, end: 20240205
  2. MABTHERA [Suspect]
     Active Substance: RITUXIMAB
     Indication: Multiple sclerosis

REACTIONS (3)
  - Myalgia [Recovering/Resolving]
  - Muscle contractions involuntary [Recovering/Resolving]
  - Myotonia [Recovering/Resolving]

NARRATIVE: CASE EVENT DATE: 20230101
